FAERS Safety Report 9714559 (Version 3)
Quarter: 2013Q4

REPORT INFORMATION
  Report Type: Spontaneous
  Country: DE (occurrence: DE)
  Receive Date: 20131126
  Receipt Date: 20131210
  Transmission Date: 20140711
  Serious: Yes (Other)
  Sender: FDA-Public Use
  Company Number: DE-ALLERGAN-1318246US

PATIENT
  Age: 19 Year
  Sex: Female

DRUGS (2)
  1. OZURDEX [Suspect]
     Indication: UVEITIS
     Dosage: 0.7 MG, SINGLE
     Route: 031
     Dates: start: 20131116, end: 20131116
  2. OZURDEX [Suspect]
     Indication: MACULAR OEDEMA
     Dosage: UNK

REACTIONS (2)
  - Choroidal effusion [Recovered/Resolved]
  - Hypotony of eye [Recovering/Resolving]
